FAERS Safety Report 17871114 (Version 1)
Quarter: 2020Q2

REPORT INFORMATION
  Report Type: Spontaneous
  Country: US (occurrence: US)
  Receive Date: 20200605
  Receipt Date: 20200605
  Transmission Date: 20200714
  Serious: Yes (Hospitalization)
  Sender: FDA-Public Use
  Company Number: None

PATIENT
  Age: 77 Year
  Sex: Female

DRUGS (12)
  1. SULFASALAZINE. [Concomitant]
     Active Substance: SULFASALAZINE
  2. LATANOPROST. [Suspect]
     Active Substance: LATANOPROST
  3. METHOTREXATE. [Concomitant]
     Active Substance: METHOTREXATE
  4. SYNTHROID [Concomitant]
     Active Substance: LEVOTHYROXINE SODIUM
  5. PREDNISONE. [Concomitant]
     Active Substance: PREDNISONE
  6. ENBREL [Suspect]
     Active Substance: ETANERCEPT
     Indication: PRODUCT USED FOR UNKNOWN INDICATION
     Route: 058
     Dates: start: 20180207
  7. HYDROXYCHIOR [Concomitant]
  8. ROSUVASTATIN. [Suspect]
     Active Substance: ROSUVASTATIN
  9. FOLIC ACID. [Concomitant]
     Active Substance: FOLIC ACID
  10. CARVEDILIOL [Concomitant]
  11. LIOTHYRONINE [Concomitant]
     Active Substance: LIOTHYRONINE
  12. RISEDRONATE [Concomitant]
     Active Substance: RISEDRONATE SODIUM

REACTIONS (2)
  - Gastrointestinal stoma complication [None]
  - Product administration interrupted [None]

NARRATIVE: CASE EVENT DATE: 20200302
